FAERS Safety Report 6143396-5 (Version None)
Quarter: 2009Q2

REPORT INFORMATION
  Report Type: 
  Country: None (occurrence: None)
  Receive Date: 20090403
  Receipt Date: 20090401
  Transmission Date: 20091009
  Serious: Yes (Other)
  Sender: FDA-Public Use
  Company Number: FR-BRISTOL-MYERS SQUIBB COMPANY-14569206

PATIENT
  Age: 22 Year
  Sex: Female

DRUGS (3)
  1. ABILIFY [Suspect]
     Indication: PSYCHOTIC DISORDER
  2. TERCIAN [Suspect]
     Indication: PSYCHOTIC DISORDER
     Dates: end: 20090318
  3. VALIUM [Suspect]
     Indication: PSYCHOTIC DISORDER

REACTIONS (3)
  - ANTINUCLEAR ANTIBODY [None]
  - CHOLANGITIS [None]
  - SMOOTH MUSCLE ANTIBODY [None]
